FAERS Safety Report 7588934-0 (Version None)
Quarter: 2011Q3

REPORT INFORMATION
  Report Type: 
  Country: None (occurrence: None)
  Receive Date: 20110705
  Receipt Date: 20110622
  Transmission Date: 20111222
  Serious: Yes (Other)
  Sender: FDA-Public Use
  Company Number: JP-SANOFI-AVENTIS-2011SA040993

PATIENT
  Age: 80 Year
  Sex: Female

DRUGS (2)
  1. ZOLPIDEM [Suspect]
     Route: 048
     Dates: start: 20110228
  2. THYRADIN [Suspect]
     Route: 065

REACTIONS (1)
  - DELIRIUM [None]
